FAERS Safety Report 16108091 (Version 1)
Quarter: 2019Q1

REPORT INFORMATION
  Report Type: Report from Study
  Country: US (occurrence: US)
  Receive Date: 20190322
  Receipt Date: 20190322
  Transmission Date: 20190418
  Serious: Yes (Death, Hospitalization, Other)
  Sender: FDA-Public Use
  Company Number: US-ACTELION-A-NJ2018-177379

PATIENT
  Age: 60 Year
  Sex: Female
  Weight: 121.54 kg

DRUGS (5)
  1. VELETRI [Suspect]
     Active Substance: EPOPROSTENOL
     Dosage: 27 NG/KG, PER MIN
     Route: 042
  2. VELETRI [Suspect]
     Active Substance: EPOPROSTENOL
     Dosage: 12 NG/KG, PER MIN
     Route: 042
  3. VELETRI [Suspect]
     Active Substance: EPOPROSTENOL
     Dosage: 38.63 NG/KG, PER MIN
     Route: 042
  4. VELETRI [Suspect]
     Active Substance: EPOPROSTENOL
     Indication: PULMONARY HYPERTENSION
     Dosage: 8 NG/KG, PER MIN
     Route: 042
  5. OXYGEN. [Concomitant]
     Active Substance: OXYGEN
     Dosage: 2 L/MIN, UNK

REACTIONS (14)
  - Infusion site pustule [Unknown]
  - Cardiac failure congestive [Unknown]
  - Headache [Unknown]
  - Death [Fatal]
  - Malaise [Unknown]
  - Oxygen consumption increased [Unknown]
  - Nausea [Unknown]
  - Vomiting [Unknown]
  - Therapeutic response decreased [Unknown]
  - Pulmonary arterial pressure increased [Unknown]
  - Flushing [Unknown]
  - Fluid overload [Unknown]
  - Erythema [Unknown]
  - Pain in jaw [Unknown]

NARRATIVE: CASE EVENT DATE: 20190309
